FAERS Safety Report 24262898 (Version 1)
Quarter: 2024Q3

REPORT INFORMATION
  Report Type: Spontaneous
  Country: US (occurrence: US)
  Receive Date: 20240829
  Receipt Date: 20240829
  Transmission Date: 20241016
  Serious: No
  Sender: NOVARTIS
  Company Number: US-002147023-NVSC2024US174181

PATIENT

DRUGS (2)
  1. NEORAL [Suspect]
     Active Substance: CYCLOSPORINE
     Indication: Product used for unknown indication
     Dosage: 100 MILLIGRAM PER MILLILITRE (50ML)
     Route: 048
  2. NEORAL [Suspect]
     Active Substance: CYCLOSPORINE

REACTIONS (1)
  - Product storage error [Unknown]
